FAERS Safety Report 10063849 (Version 1)
Quarter: 2014Q2

REPORT INFORMATION
  Report Type: Report from Study
  Country: DE (occurrence: DE)
  Receive Date: 20140408
  Receipt Date: 20140408
  Transmission Date: 20141212
  Serious: Yes (Hospitalization)
  Sender: FDA-Public Use
  Company Number: DE-BIOGENIDEC-2014BI030886

PATIENT
  Age: 50 Year
  Sex: Female

DRUGS (4)
  1. TYSABRI [Suspect]
     Indication: RELAPSING-REMITTING MULTIPLE SCLEROSIS
     Route: 042
     Dates: start: 20091130
  2. BACLOFEN [Concomitant]
     Indication: MUSCLE SPASTICITY
     Route: 048
     Dates: start: 20100610
  3. TOLPERISON [Concomitant]
     Indication: MUSCLE SPASTICITY
     Dates: start: 20110901
  4. CYMBALTA [Concomitant]
     Indication: NEURALGIA
     Dates: start: 20140101

REACTIONS (3)
  - Syncope [Recovered/Resolved]
  - Arthralgia [Recovered/Resolved]
  - Ligament rupture [Recovered/Resolved]
